FAERS Safety Report 4943966-3 (Version None)
Quarter: 2006Q1

REPORT INFORMATION
  Report Type: 
  Country: None (occurrence: None)
  Receive Date: 20060313
  Receipt Date: 20060313
  Transmission Date: 20060701
  Serious: Yes (Hospitalization, Other)
  Sender: FDA-Public Use
  Company Number: None

PATIENT
  Age: 82 Year
  Sex: Female
  Weight: 56.6996 kg

DRUGS (7)
  1. AMBIEN [Suspect]
     Indication: DRUG DISPENSING ERROR
     Dosage: 1 PER DAY 1PO
     Route: 048
     Dates: start: 20060118, end: 20060304
  2. CELEBREX [Concomitant]
  3. LEVOXYL [Concomitant]
  4. TOPROL [Concomitant]
  5. OXYBUTYNIN [Concomitant]
  6. LANOXIN [Concomitant]
  7. PROPOXY-N [Concomitant]

REACTIONS (9)
  - AMNESIA [None]
  - CONDITION AGGRAVATED [None]
  - DEMENTIA [None]
  - DRUG DISPENSING ERROR [None]
  - FALL [None]
  - HALLUCINATION [None]
  - HIP FRACTURE [None]
  - MEDICATION ERROR [None]
  - SLEEP WALKING [None]
